FAERS Safety Report 11530969 (Version 2)
Quarter: 2015Q3

REPORT INFORMATION
  Report Type: Spontaneous
  Country: GB (occurrence: GB)
  Receive Date: 20150921
  Receipt Date: 20150929
  Transmission Date: 20151125
  Serious: Yes (Other)
  Sender: FDA-Public Use
  Company Number: GB-PFIZER INC-2015313293

PATIENT
  Age: 23 Year
  Sex: Female

DRUGS (1)
  1. SULFASALAZINE. [Suspect]
     Active Substance: SULFASALAZINE
     Indication: MUSCULOSKELETAL STIFFNESS
     Dosage: UNK

REACTIONS (2)
  - Ankle fracture [Unknown]
  - Neuropathic arthropathy [Unknown]
